FAERS Safety Report 21228804 (Version 2)
Quarter: 2023Q1

REPORT INFORMATION
  Report Type: Spontaneous
  Country: US (occurrence: US)
  Receive Date: 20220818
  Receipt Date: 20230109
  Transmission Date: 20230418
  Serious: Yes (Other)
  Sender: FDA-Public Use
  Company Number: US-PFIZER INC-PV202200043799

PATIENT
  Age: 59 Year
  Sex: Female

DRUGS (1)
  1. CIBINQO [Suspect]
     Active Substance: ABROCITINIB
     Indication: Eczema
     Dosage: 100 MG, DAILY
     Route: 048

REACTIONS (6)
  - Pain [Recovering/Resolving]
  - Therapeutic response unexpected [Unknown]
  - Abnormal behaviour [Unknown]
  - Drug ineffective [Unknown]
  - Eczema [Recovering/Resolving]
  - Hypertension [Not Recovered/Not Resolved]
